FAERS Safety Report 8237206-X (Version None)
Quarter: 2012Q1

REPORT INFORMATION
  Report Type: 
  Country: None (occurrence: None)
  Receive Date: 20120326
  Receipt Date: 20120326
  Transmission Date: 20120608
  Serious: No
  Sender: FDA-Public Use
  Company Number: None

PATIENT
  Age: 53 Year
  Sex: Female
  Weight: 56.246 kg

DRUGS (1)
  1. BONIVA [Suspect]
     Indication: OSTEOPOROSIS PROPHYLAXIS
     Dosage: 1 DOSE
     Dates: start: 20060301

REACTIONS (6)
  - PAIN IN EXTREMITY [None]
  - FOOT DEFORMITY [None]
  - DYSPEPSIA [None]
  - PSORIASIS [None]
  - MUSCULOSKELETAL PAIN [None]
  - ARTHRALGIA [None]
